FAERS Safety Report 13837687 (Version 1)
Quarter: 2017Q3

REPORT INFORMATION
  Report Type: Spontaneous
  Country: US (occurrence: US)
  Receive Date: 20170806
  Receipt Date: 20170806
  Transmission Date: 20171127
  Serious: No
  Sender: FDA-Public Use
  Company Number: US-MISSION PHARMACAL COMPANY-2024219

PATIENT
  Age: 68 Year
  Sex: Male

DRUGS (1)
  1. UROCIT-K [Suspect]
     Active Substance: POTASSIUM CITRATE
     Indication: PRODUCT USED FOR UNKNOWN INDICATION
     Route: 065
     Dates: start: 20170722

REACTIONS (1)
  - Rash [Not Recovered/Not Resolved]
